FAERS Safety Report 12305648 (Version 1)
Quarter: 2016Q2

REPORT INFORMATION
  Report Type: Report from Study
  Country: US (occurrence: US)
  Receive Date: 20160426
  Receipt Date: 20160426
  Transmission Date: 20160815
  Serious: Yes (Hospitalization, Other)
  Sender: FDA-Public Use
  Company Number: US-ZYDUS-010900

PATIENT
  Age: 49 Year
  Sex: Male
  Weight: 86.18 kg

DRUGS (1)
  1. METHYLPHENIDATE. [Suspect]
     Active Substance: METHYLPHENIDATE
     Indication: ATTENTION DEFICIT/HYPERACTIVITY DISORDER
     Route: 048
     Dates: start: 20160414, end: 20160414

REACTIONS (2)
  - Clostridium difficile infection [Unknown]
  - Diverticulitis [Unknown]

NARRATIVE: CASE EVENT DATE: 20160417
